FAERS Safety Report 13687000 (Version 2)
Quarter: 2017Q3

REPORT INFORMATION
  Report Type: Spontaneous
  Country: US (occurrence: US)
  Receive Date: 20170623
  Receipt Date: 20170720
  Transmission Date: 20171127
  Serious: Yes (Death, Hospitalization)
  Sender: FDA-Public Use
  Company Number: US-LEXICON PHARMACEUTICALS, INC-17-1606-00424

PATIENT
  Age: 71 Year
  Sex: Male
  Weight: 83 kg

DRUGS (27)
  1. TELOTRISTAT ETHYL [Suspect]
     Active Substance: TELOTRISTAT ETHYL
     Indication: PANCREATIC NEUROENDOCRINE TUMOUR
     Route: 048
     Dates: start: 20170410, end: 20170610
  2. ACETAMINOPHEN. [Concomitant]
     Active Substance: ACETAMINOPHEN
  3. CHLORDIAZEPOXIDE. [Concomitant]
     Active Substance: CHLORDIAZEPOXIDE
  4. CIMETIDINE [Concomitant]
     Active Substance: CIMETIDINE
  5. EVEROLIMUS [Concomitant]
     Active Substance: EVEROLIMUS
  6. METFORMIN [Concomitant]
     Active Substance: METFORMIN HYDROCHLORIDE
  7. PROCTOZONE-HC [Concomitant]
     Active Substance: HYDROCORTISONE
  8. TRAMADOL. [Concomitant]
     Active Substance: TRAMADOL
  9. BUPROPION. [Concomitant]
     Active Substance: BUPROPION
  10. PIOGLITAZONE. [Concomitant]
     Active Substance: PIOGLITAZONE
  11. ACETAMINOPHEN-CODEINE [Concomitant]
     Active Substance: ACETAMINOPHEN\CODEINE PHOSPHATE
  12. CLONIDINE. [Concomitant]
     Active Substance: CLONIDINE
  13. GABAPENTIN. [Concomitant]
     Active Substance: GABAPENTIN
  14. BOOST [Concomitant]
     Active Substance: DIETARY SUPPLEMENT
  15. POLYCARBOPHIL [Concomitant]
     Active Substance: POLYCARBOPHIL
  16. POTASSIUM CHLORIDE. [Concomitant]
     Active Substance: POTASSIUM CHLORIDE
  17. REPAGLINIDE. [Concomitant]
     Active Substance: REPAGLINIDE
  18. LISINOPRIL. [Concomitant]
     Active Substance: LISINOPRIL
  19. LOPERAMIDE HCI [Concomitant]
     Active Substance: LOPERAMIDE HYDROCHLORIDE
  20. TORSEMIDE. [Concomitant]
     Active Substance: TORSEMIDE
  21. FOLBEE [Concomitant]
     Active Substance: CYANOCOBALAMIN\FOLIC ACID\PYRIDOXINE HYDROCHLORIDE
  22. LBUPROFEN [Concomitant]
  23. INSULIN GLARGINE [Concomitant]
     Active Substance: INSULIN GLARGINE
  24. LUBIPROSTONE [Concomitant]
     Active Substance: LUBIPROSTONE
  25. NISOLDIPINE. [Concomitant]
     Active Substance: NISOLDIPINE
  26. TELOTRISTAT ETHYL [Suspect]
     Active Substance: TELOTRISTAT ETHYL
     Indication: DIARRHOEA
  27. PANCRELIPASE. [Concomitant]
     Active Substance: PANCRELIPASE

REACTIONS (4)
  - Peritonitis [Fatal]
  - Intestinal perforation [Fatal]
  - Ileus [Fatal]
  - Septic shock [Fatal]

NARRATIVE: CASE EVENT DATE: 20170612
